FAERS Safety Report 10239393 (Version 2)
Quarter: 2014Q2

REPORT INFORMATION
  Report Type: Spontaneous
  Country: US (occurrence: None)
  Receive Date: 20140612
  Receipt Date: 20140616
  Transmission Date: 20141212
  Serious: Yes (Hospitalization)
  Sender: FDA-Public Use
  Company Number: UNT-2014-001491

PATIENT
  Age: 44 Year
  Sex: Female
  Weight: 88 kg

DRUGS (4)
  1. REMODULIN [Suspect]
     Indication: PULMONARY ARTERIAL HYPERTENSION
     Dosage: 0.03125 UG/KG, CONTINUING, SUBCUTANEOUS
     Route: 058
     Dates: start: 20130826
  2. WARFARIN (WARFARIN) UNKNOWN [Concomitant]
  3. LETAIRIS (AMBRISENTAN) UNKNOWN [Concomitant]
  4. ADCIRCA (TADALAFIL) UNKNOWN [Concomitant]

REACTIONS (3)
  - Dizziness [None]
  - Presyncope [None]
  - Urinary tract infection [None]
